FAERS Safety Report 5338990-5 (Version None)
Quarter: 2007Q2

REPORT INFORMATION
  Report Type: 
  Country: None (occurrence: None)
  Receive Date: 20070530
  Receipt Date: 20070523
  Transmission Date: 20071010
  Serious: Yes (Life-Threatening, Other)
  Sender: FDA-Public Use
  Company Number: CA-SANOFI-SYNTHELABO-F01200700688

PATIENT
  Sex: Male

DRUGS (6)
  1. BUSERELIN [Suspect]
     Indication: PROSTATE CANCER
     Dates: start: 20041001, end: 20061030
  2. ACCUPR [Concomitant]
     Route: 048
     Dates: start: 20061001
  3. TAXOTERE [Suspect]
     Indication: PROSTATE CANCER
     Route: 042
     Dates: start: 20041126, end: 20050127
  4. CITALOPRAM HYDROBROMIDE [Concomitant]
     Indication: DEPRESSION
     Route: 048
     Dates: start: 20050601
  5. RADIOTHERAPY [Suspect]
     Indication: PROSTATE CANCER
     Dates: end: 20050501
  6. ELIGARD [Suspect]
     Indication: PROSTATE CANCER
     Route: 058

REACTIONS (1)
  - MYOCARDIAL INFARCTION [None]
